FAERS Safety Report 7959148-7 (Version None)
Quarter: 2011Q4

REPORT INFORMATION
  Report Type: 
  Country: None (occurrence: None)
  Receive Date: 20111206
  Receipt Date: 20111123
  Transmission Date: 20120403
  Serious: Yes (Hospitalization)
  Sender: FDA-Public Use
  Company Number: SE-ELI_LILLY_AND_COMPANY-SE201111002026

PATIENT
  Sex: Female

DRUGS (15)
  1. ESTRADIOL [Concomitant]
     Dosage: 1 MG, UNK
  2. DULCOLAX [Concomitant]
     Dosage: 10 MG, UNK
  3. IMOVANE [Concomitant]
     Dosage: 7.5 MG, UNK
  4. ZYPREXA [Suspect]
     Dosage: UNK
  5. LAMICTAL [Concomitant]
     Dosage: 100 MG, UNK
  6. VALPROATE SODIUM [Concomitant]
     Dosage: 100 MG, UNK
  7. LAKTIPEX [Concomitant]
     Dosage: 10 G, UNK
  8. ZYPREXA [Suspect]
     Indication: MAJOR DEPRESSION
     Dosage: UNK
  9. XERODENT [Concomitant]
  10. ALVEDON [Concomitant]
     Dosage: 500 MG, UNK
  11. SEROQUEL [Concomitant]
     Dosage: 25 MG, UNK
  12. LEVOTHYROXINE SODIUM [Concomitant]
     Dosage: 75 MG, UNK
  13. LERGIGAN [Concomitant]
     Dosage: 5 MG, UNK
  14. ORALOVITE [Concomitant]
  15. CALCICHEW D3 [Concomitant]

REACTIONS (1)
  - RENAL FAILURE ACUTE [None]
